FAERS Safety Report 6504308-5 (Version None)
Quarter: 2009Q4

REPORT INFORMATION
  Report Type: 
  Country: None (occurrence: None)
  Receive Date: 20091217
  Receipt Date: 20091215
  Transmission Date: 20100525
  Serious: Yes (Hospitalization)
  Sender: FDA-Public Use
  Company Number: FR-WYE-G05150609

PATIENT
  Age: 18 Month
  Sex: Female

DRUGS (4)
  1. ADVIL LIQUI-GELS [Suspect]
     Indication: NASOPHARYNGITIS
     Dosage: UNKNOWN
     Route: 048
     Dates: start: 19990101
  2. ADVIL LIQUI-GELS [Suspect]
     Indication: EAR INFECTION
  3. DOLIPRANE [Concomitant]
     Indication: NASOPHARYNGITIS
     Dosage: UNKNOWN
     Route: 048
     Dates: start: 19990101
  4. DOLIPRANE [Concomitant]
     Indication: EAR INFECTION

REACTIONS (7)
  - APATHY [None]
  - CONDITION AGGRAVATED [None]
  - EAR INFECTION [None]
  - HAEMOLYTIC URAEMIC SYNDROME [None]
  - NASOPHARYNGITIS [None]
  - PLEURAL EFFUSION [None]
  - PNEUMONIA PNEUMOCOCCAL [None]
